FAERS Safety Report 15155515 (Version 2)
Quarter: 2018Q3

REPORT INFORMATION
  Report Type: Spontaneous
  Country: BR (occurrence: BR)
  Receive Date: 20180717
  Receipt Date: 20180801
  Transmission Date: 20181010
  Serious: Yes (Disabling, Other)
  Sender: FDA-Public Use
  Company Number: BR-SA-2018SA181526

PATIENT
  Age: 70 Year
  Sex: Female

DRUGS (1)
  1. LEFLUNOMIDE. [Suspect]
     Active Substance: LEFLUNOMIDE
     Dosage: UNKNOWN
     Route: 065

REACTIONS (7)
  - Malaise [Recovering/Resolving]
  - Mobility decreased [Recovering/Resolving]
  - Intestinal haemorrhage [Recovering/Resolving]
  - Pain [Recovering/Resolving]
  - Muscle spasms [Unknown]
  - Alopecia [Recovering/Resolving]
  - Arthralgia [Unknown]
